FAERS Safety Report 7426143-6 (Version None)
Quarter: 2011Q2

REPORT INFORMATION
  Report Type: 
  Country: None (occurrence: None)
  Receive Date: 20110420
  Receipt Date: 20110413
  Transmission Date: 20111010
  Serious: Yes (Life-Threatening)
  Sender: FDA-Public Use
  Company Number: PHHY2011BR31228

PATIENT
  Sex: Female

DRUGS (2)
  1. DIOVAN [Suspect]
     Indication: CARDIAC DISORDER
     Dosage: UNK
     Dates: end: 20100101
  2. LOSARTAN POTASSIUM [Concomitant]
     Dosage: 50 MG, 1 TABLET, DAILY
     Dates: start: 20110101, end: 20110406

REACTIONS (2)
  - MALAISE [None]
  - FATIGUE [None]
